FAERS Safety Report 15726283 (Version 5)
Quarter: 2020Q3

REPORT INFORMATION
  Report Type: Spontaneous
  Country: MX (occurrence: MX)
  Receive Date: 20181216
  Receipt Date: 20200713
  Transmission Date: 20201102
  Serious: Yes (Other)
  Sender: FDA-Public Use
  Company Number: MX-BIOGEN-2018BI00672331

PATIENT
  Age: 11 Month
  Sex: Male

DRUGS (3)
  1. TYSABRI [Suspect]
     Active Substance: NATALIZUMAB
     Route: 050
     Dates: end: 20160314
  2. TYSABRI [Suspect]
     Active Substance: NATALIZUMAB
     Indication: MATERNAL EXPOSURE TIMING UNSPECIFIED
     Route: 050
     Dates: start: 20150615, end: 20160302
  3. TYSABRI [Suspect]
     Active Substance: NATALIZUMAB
     Route: 050
     Dates: start: 20161214

REACTIONS (2)
  - Foetal exposure during pregnancy [Recovered/Resolved]
  - Myoclonic epilepsy [Recovered/Resolved]

NARRATIVE: CASE EVENT DATE: 201711
